FAERS Safety Report 9197528 (Version 3)
Quarter: 2013Q2

REPORT INFORMATION
  Report Type: Report from Study
  Country: FR (occurrence: FR)
  Receive Date: 20130328
  Receipt Date: 20130510
  Transmission Date: 20140414
  Serious: Yes (Hospitalization)
  Sender: FDA-Public Use
  Company Number: FR-MPIJNJ-2013-02285

PATIENT
  Sex: 0

DRUGS (17)
  1. VELCADE [Suspect]
     Indication: PLASMA CELL MYELOMA
     Dosage: 1.3 MG/M2, UNK
     Route: 042
     Dates: start: 20130219, end: 20130302
  2. VELCADE [Suspect]
     Dosage: 1 UNK, UNK
     Route: 042
     Dates: start: 201304
  3. DEXAMETHASONE [Suspect]
     Indication: PLASMA CELL MYELOMA
     Dosage: 20 MG, UNK
     Route: 048
     Dates: start: 20130219, end: 20130302
  4. DEXAMETHASONE [Suspect]
     Dosage: 20 UNK, UNK
     Route: 048
     Dates: start: 201304
  5. CYCLOPHOSPHAMIDE [Suspect]
     Indication: PLASMA CELL MYELOMA
     Dosage: 750 MG/M2, UNK
     Route: 042
     Dates: start: 20130219, end: 20130302
  6. CYCLOPHOSPHAMIDE [Suspect]
     Dosage: 500 UNK, UNK
     Route: 042
     Dates: start: 201304
  7. NEBIVOLOL [Concomitant]
     Dosage: 5 MG, UNK
     Route: 048
  8. CRESTOR                            /01588601/ [Concomitant]
     Dosage: 5 MG, UNK
     Route: 048
  9. PANTOPRAZOLE [Concomitant]
     Dosage: 20 MG, UNK
     Route: 048
  10. XANAX [Concomitant]
     Dosage: 0.25 MG, UNK
     Route: 048
  11. AMLOR [Concomitant]
     Dosage: 5 MG, UNK
  12. NORSET [Concomitant]
     Dosage: 15 MG, UNK
  13. SODIUM BICARBONATE [Concomitant]
  14. ORACILLIN                          /00001802/ [Concomitant]
     Dosage: 1000000 IU, UNK
  15. ZELITREX                           /01269701/ [Concomitant]
  16. ARANESP [Concomitant]
  17. PENTACARINAT [Concomitant]

REACTIONS (3)
  - Inflammation [Recovered/Resolved]
  - Aplasia [Recovered/Resolved]
  - Anaemia [Recovered/Resolved]
